FAERS Safety Report 9523062 (Version 1)
Quarter: 2013Q1

REPORT INFORMATION
  Report Type: Spontaneous
  Country: US (occurrence: None)
  Receive Date: 20130305
  Receipt Date: 20130305
  Transmission Date: 20140127
  Serious: Yes (Other)
  Sender: FDA-Public Use
  Company Number: 163-21880-12031810

PATIENT
  Age: 64 Year
  Sex: Male

DRUGS (11)
  1. REVLIMID (LENALIDOMIDE) (25 MILLIGRAM, CAPSULES) [Suspect]
     Indication: PLASMA CELL MYELOMA
     Route: 048
     Dates: start: 20111227
  2. VELCADE [Concomitant]
  3. ACYCLOVIR [Concomitant]
  4. DEXAMETHASONE [Concomitant]
  5. OXYCODONE [Concomitant]
  6. ASPIRIN [Concomitant]
  7. LISINOPRIL [Concomitant]
  8. ALEVE [Concomitant]
  9. SHAKLEE PAIN RELIEVER [Concomitant]
  10. OXYCONTIN [Concomitant]
  11. PAMIDRONATE [Concomitant]

REACTIONS (1)
  - Thrombosis [None]
